FAERS Safety Report 8281850-0 (Version None)
Quarter: 2012Q2

REPORT INFORMATION
  Report Type: 
  Country: None (occurrence: None)
  Receive Date: 20120413
  Receipt Date: 20120410
  Transmission Date: 20120825
  Serious: Yes (Death, Hospitalization)
  Sender: FDA-Public Use
  Company Number: PHHY2012BR022140

PATIENT
  Sex: Female

DRUGS (12)
  1. MULTIVITAMIN [Concomitant]
     Dosage: UNK UKN, UNK
  2. METICORTEN [Concomitant]
     Dosage: 10 MG, UNK
  3. DAFLON [Concomitant]
     Dosage: 500 MG, UNK
  4. EXELON [Suspect]
     Indication: DEMENTIA ALZHEIMER'S TYPE
     Dosage: 13.3 MG, (PATCH 15) (27MG/15CM?) 1 ADHESIVE  DAILY
     Route: 062
     Dates: start: 20110101
  5. AMLODIPINE BESYLATE [Concomitant]
     Dosage: 5 MG, UNK
  6. ATENOLOL [Concomitant]
     Dosage: 25 MG, UNK
     Route: 048
  7. PAMELOR [Concomitant]
     Dosage: 50 MG, UNK
  8. CILOSTAZOL [Concomitant]
     Dosage: UNK UKN, UNK
  9. OMEPRAZOLE [Concomitant]
     Dosage: 20 MG, UNK
     Route: 048
  10. AMIODARONE HYDROCHLORIDE [Concomitant]
     Dosage: 100 MG, UNK
  11. LASIX [Concomitant]
     Dosage: 40 MG, UNK
  12. HYDROXYCHLOROQUINE SULFATE [Concomitant]
     Dosage: 400 MG, UNK

REACTIONS (7)
  - URINE OUTPUT DECREASED [None]
  - RENAL FAILURE [None]
  - BLOOD UREA INCREASED [None]
  - SEPSIS [None]
  - BLOOD CREATININE INCREASED [None]
  - PNEUMONIA [None]
  - SWELLING [None]
